FAERS Safety Report 6089976-7 (Version None)
Quarter: 2009Q1

REPORT INFORMATION
  Report Type: 
  Country: None (occurrence: None)
  Receive Date: 20090224
  Receipt Date: 20081124
  Transmission Date: 20090719
  Serious: No
  Sender: FDA-Public Use
  Company Number: US-ABBOTT-08P-163-0489596-00

PATIENT

DRUGS (7)
  1. SIMCOR [Suspect]
     Indication: DRUG USE FOR UNKNOWN INDICATION
     Dosage: FORM: 500/20 MILLIGRAMS
     Dates: start: 20081114
  2. BENACOR [Concomitant]
     Indication: DRUG USE FOR UNKNOWN INDICATION
     Route: 048
  3. ACETYLSALICYLIC ACID SRT [Concomitant]
     Indication: DRUG USE FOR UNKNOWN INDICATION
     Route: 048
  4. THYROID HORMONE MEDICATION [Concomitant]
     Indication: DRUG USE FOR UNKNOWN INDICATION
     Route: 048
  5. FLEXERIL [Concomitant]
     Indication: DRUG USE FOR UNKNOWN INDICATION
     Dosage: 1 OR 2 AS NEEDED
     Route: 048
  6. GLUCOACH (SHE IS CURRENTLY OUT OF THIS MEDICATION) [Concomitant]
     Indication: DIABETES MELLITUS
     Route: 048
  7. CARISOPRODOL [Concomitant]
     Indication: BACK PAIN
     Route: 048

REACTIONS (8)
  - BACK PAIN [None]
  - FLUSHING [None]
  - HEADACHE [None]
  - HUNGER [None]
  - INSOMNIA [None]
  - NAUSEA [None]
  - PAIN [None]
  - PRURITUS [None]
